FAERS Safety Report 18649121 (Version 1)
Quarter: 2020Q4

REPORT INFORMATION
  Report Type: Spontaneous
  Country: US (occurrence: US)
  Receive Date: 20201222
  Receipt Date: 20201222
  Transmission Date: 20210114
  Serious: Yes (Other)
  Sender: FDA-Public Use
  Company Number: US-MYLANLABS-2020M1103442

PATIENT
  Age: 55 Year
  Sex: Female

DRUGS (6)
  1. PREDNISONE. [Suspect]
     Active Substance: PREDNISONE
     Indication: EOSINOPHILIC PNEUMONIA CHRONIC
     Dosage: INITIAL DOSE NOT STATED
     Route: 048
  2. PREDNISONE. [Suspect]
     Active Substance: PREDNISONE
     Dosage: 20 MILLIGRAM, QD
     Route: 048
  3. SALMETEROL [Concomitant]
     Active Substance: SALMETEROL
     Indication: COUGH VARIANT ASTHMA
     Dosage: UNK UNK, BID
     Route: 065
  4. PREDNISONE. [Suspect]
     Active Substance: PREDNISONE
     Dosage: 20 MILLIGRAM EVERY OTHER DAY
     Route: 048
  5. FLUTICASONE. [Concomitant]
     Active Substance: FLUTICASONE
     Indication: COUGH VARIANT ASTHMA
     Dosage: UNK UNK, BID
     Route: 055
  6. PREDNISONE. [Suspect]
     Active Substance: PREDNISONE
     Dosage: 5 MILLIGRAM, QD
     Route: 048

REACTIONS (7)
  - Irritability [Unknown]
  - Condition aggravated [Recovered/Resolved]
  - Eosinophilic pneumonia chronic [Recovered/Resolved]
  - Anxiety [Unknown]
  - Rebound effect [Recovered/Resolved]
  - Paranoia [Unknown]
  - Insomnia [Unknown]
